FAERS Safety Report 12318914 (Version 1)
Quarter: 2016Q2

REPORT INFORMATION
  Report Type: Spontaneous
  Country: JP (occurrence: JP)
  Receive Date: 20160429
  Receipt Date: 20160429
  Transmission Date: 20160815
  Serious: Yes (Death, Other)
  Sender: FDA-Public Use
  Company Number: PHHY2016JP053926

PATIENT
  Age: 68 Year
  Sex: Male
  Weight: 49.5 kg

DRUGS (3)
  1. OXALIPLATIN. [Suspect]
     Active Substance: OXALIPLATIN
     Indication: METASTASES TO LIVER
     Route: 065
     Dates: start: 200901
  2. 5 FLUORO URACIL [Suspect]
     Active Substance: FLUOROURACIL
     Indication: METASTASES TO LIVER
     Route: 065
     Dates: start: 200901
  3. LEUCOVORIN. [Suspect]
     Active Substance: LEUCOVORIN
     Indication: METASTASES TO LIVER
     Route: 065
     Dates: start: 200901

REACTIONS (8)
  - Metastases to liver [Fatal]
  - Duodenal perforation [Unknown]
  - Metastases to peritoneum [Unknown]
  - Disease progression [Fatal]
  - Neuropathy peripheral [Unknown]
  - Respiratory failure [Fatal]
  - Pleural effusion [Fatal]
  - Nausea [Unknown]
